FAERS Safety Report 20399839 (Version 2)
Quarter: 2022Q1

REPORT INFORMATION
  Report Type: Spontaneous
  Country: US (occurrence: US)
  Receive Date: 20220131
  Receipt Date: 20220201
  Transmission Date: 20220423
  Serious: No
  Sender: FDA-Public Use
  Company Number: US-ABBVIE-21K-163-4017760-00

PATIENT
  Age: 31 Year
  Sex: Female
  Weight: 74.910 kg

DRUGS (4)
  1. HUMIRA [Suspect]
     Active Substance: ADALIMUMAB
     Indication: Psoriasis
     Route: 058
     Dates: start: 202106
  2. METHYLPREDNISOLONE [Concomitant]
     Active Substance: METHYLPREDNISOLONE
     Indication: Sinus congestion
  3. IBUPROFEN [Concomitant]
     Active Substance: IBUPROFEN
     Indication: Sinus congestion
  4. LORATADINE [Concomitant]
     Active Substance: LORATADINE
     Indication: Sinus congestion

REACTIONS (1)
  - Sinus congestion [Recovering/Resolving]

NARRATIVE: CASE EVENT DATE: 20210722
